FAERS Safety Report 4650864-1 (Version None)
Quarter: 2005Q2

REPORT INFORMATION
  Report Type: 
  Country: None (occurrence: None)
  Receive Date: 20050429
  Receipt Date: 20050429
  Transmission Date: 20051028
  Serious: Yes (Other)
  Sender: FDA-Public Use
  Company Number: None

PATIENT
  Age: 13 Year
  Sex: Female
  Weight: 44.9061 kg

DRUGS (1)
  1. ROWASA [Suspect]
     Indication: COLITIS
     Dosage: 1/2 PR BID
     Route: 054
     Dates: start: 20051224

REACTIONS (2)
  - ANAL DISCOMFORT [None]
  - THERAPEUTIC RESPONSE UNEXPECTED WITH DRUG SUBSTITUTION [None]
